FAERS Safety Report 11078432 (Version 1)
Quarter: 2015Q2

REPORT INFORMATION
  Report Type: Spontaneous
  Country: US (occurrence: None)
  Receive Date: 20150429
  Receipt Date: 20150429
  Transmission Date: 20150821
  Serious: Yes (Disabling)
  Sender: FDA-Public Use
  Company Number: None

PATIENT
  Age: 50 Year
  Sex: Female
  Weight: 98.88 kg

DRUGS (9)
  1. VICTOZA [Suspect]
     Active Substance: LIRAGLUTIDE
     Indication: WEIGHT DECREASED
     Dosage: GIVEN INTO/UNDER THE SKIN
     Dates: start: 20150217, end: 20150320
  2. CALCIUM [Concomitant]
     Active Substance: CALCIUM
  3. BABY ASPIRIN [Concomitant]
     Active Substance: ASPIRIN
  4. METFORMIN [Concomitant]
     Active Substance: METFORMIN HYDROCHLORIDE
  5. HUMALOG 75/25 [Concomitant]
  6. VITAMIN E [Concomitant]
     Active Substance: .ALPHA.-TOCOPHEROL
  7. VICTOZA [Suspect]
     Active Substance: LIRAGLUTIDE
     Indication: THERAPY CHANGE
     Dosage: GIVEN INTO/UNDER THE SKIN
     Dates: start: 20150217, end: 20150320
  8. VICTOZA [Suspect]
     Active Substance: LIRAGLUTIDE
     Indication: BLOOD GLUCOSE ABNORMAL
     Dosage: GIVEN INTO/UNDER THE SKIN
     Dates: start: 20150217, end: 20150320
  9. IRON [Concomitant]
     Active Substance: IRON

REACTIONS (1)
  - Palpitations [None]

NARRATIVE: CASE EVENT DATE: 20150217
